FAERS Safety Report 17913089 (Version 1)
Quarter: 2020Q2

REPORT INFORMATION
  Report Type: Spontaneous
  Country: DE (occurrence: DE)
  Receive Date: 20200618
  Receipt Date: 20200618
  Transmission Date: 20200714
  Serious: Yes (Life-Threatening, Hospitalization)
  Sender: FDA-Public Use
  Company Number: DE-TEVA-2020-DE-1788258

PATIENT
  Age: 84 Year
  Sex: Male

DRUGS (10)
  1. TAMSULOSIN [Concomitant]
     Active Substance: TAMSULOSIN
     Dosage: .4 MILLIGRAM DAILY; 0.4 MG, 0-0-1-0,
     Route: 048
  2. ATORVASTATIN [Concomitant]
     Active Substance: ATORVASTATIN
     Dosage: 20 MILLIGRAM DAILY;  0-0-1-0,
     Route: 048
  3. ACETYLSALICYLSAURE [Suspect]
     Active Substance: ASPIRIN
     Dosage: 100 MILLIGRAM DAILY; 0-1-0-0
     Route: 048
  4. BENSERAZID/LEVODOPA [Concomitant]
     Active Substance: BENSERAZIDE\LEVODOPA
     Dosage: 4 DOSAGE FORMS DAILY; 25/100 MG, 0-0-1-1,
     Route: 048
  5. MACROGOL [Concomitant]
     Active Substance: POLYETHYLENE GLYCOLS
     Dosage: 1 DOSAGE FORMS DAILY; 1-0-0-0
     Route: 048
  6. CANDESARTAN. [Concomitant]
     Active Substance: CANDESARTAN
     Dosage: 4 MILLIGRAM DAILY; 1-0-0-0,
     Route: 048
  7. COLECALCIFEROL (VITAMIN D) [Concomitant]
     Dosage: 20,000 IU / 2 WEEKS, 1-0-0-0, CAPSULES
     Route: 048
  8. PANTOPRAZOL [Concomitant]
     Active Substance: PANTOPRAZOLE SODIUM
     Dosage: 40 MILLIGRAM DAILY; 40 MG, 1-0-0-0
     Route: 048
  9. TORASEMIDE [Suspect]
     Active Substance: TORSEMIDE
     Dosage: 20 MG, 1-0.5-0-0, UNIT DOSE: 30 MG
     Route: 048
  10. TRIMBOW  87MIKROGRAMM/5MIKROGRAMM/9MIKROGRAMM [Concomitant]
     Dosage: 2 DOSAGE FORMS DAILY; 87 /5 / 9 UG, 1-0-0-1, MDI
     Route: 055

REACTIONS (4)
  - Anaemia [Unknown]
  - General physical health deterioration [Unknown]
  - Condition aggravated [Unknown]
  - Pallor [Unknown]
